FAERS Safety Report 7110598-0 (Version None)
Quarter: 2010Q4

REPORT INFORMATION
  Report Type: 
  Country: None (occurrence: None)
  Receive Date: 20101118
  Receipt Date: 20101109
  Transmission Date: 20110411
  Serious: Yes (Other)
  Sender: FDA-Public Use
  Company Number: US-ASTRAZENECA-2010SE53564

PATIENT
  Sex: Female

DRUGS (1)
  1. VIMOVO [Suspect]
     Indication: TEMPOROMANDIBULAR JOINT SYNDROME
     Route: 048
     Dates: start: 20100101, end: 20100101

REACTIONS (1)
  - GASTRIC HAEMORRHAGE [None]
